FAERS Safety Report 6072447-1 (Version None)
Quarter: 2009Q1

REPORT INFORMATION
  Report Type: 
  Country: None (occurrence: None)
  Receive Date: 20090210
  Receipt Date: 20090210
  Transmission Date: 20090719
  Serious: Yes (Other)
  Sender: FDA-Public Use
  Company Number: US-PFIZER INC-2008159507

PATIENT
  Sex: Female

DRUGS (2)
  1. LYRICA [Suspect]
  2. ANALGESICS [Concomitant]

REACTIONS (6)
  - HYPOAESTHESIA [None]
  - PAIN [None]
  - SURGERY [None]
  - SWELLING [None]
  - TREMOR [None]
  - WEIGHT DECREASED [None]
